FAERS Safety Report 9041107 (Version 1)
Quarter: 2013Q1

REPORT INFORMATION
  Report Type: Spontaneous
  Country: US (occurrence: None)
  Receive Date: 20130114
  Receipt Date: 20130114
  Transmission Date: 20140127
  Serious: Yes (Other)
  Sender: FDA-Public Use
  Company Number: 001445348A

PATIENT
  Age: 14 Year
  Sex: Male

DRUGS (1)
  1. PROACTIVE RENEWING CLEANSER [Suspect]
     Indication: ACNE
     Dosage: OCULAR
     Route: 031
     Dates: start: 20121211

REACTIONS (3)
  - Accidental exposure to product [None]
  - Chemical burns of eye [None]
  - Eye burns [None]
